FAERS Safety Report 22075206 (Version 1)
Quarter: 2023Q1

REPORT INFORMATION
  Report Type: Spontaneous
  Country: CN (occurrence: CN)
  Receive Date: 20230308
  Receipt Date: 20230308
  Transmission Date: 20230418
  Serious: Yes (Other)
  Sender: FDA-Public Use
  Company Number: CN-AMGEN-CHNSL2023019003

PATIENT
  Age: 53 Year
  Sex: Female
  Weight: 48 kg

DRUGS (1)
  1. XGEVA [Suspect]
     Active Substance: DENOSUMAB
     Indication: Lung cancer metastatic
     Dosage: 120 MILLIGRAM, Q2MO
     Route: 065
     Dates: start: 20210528

REACTIONS (2)
  - Peripheral paralysis [Not Recovered/Not Resolved]
  - Off label use [Unknown]

NARRATIVE: CASE EVENT DATE: 20210528
